FAERS Safety Report 7104407-3 (Version None)
Quarter: 2010Q4

REPORT INFORMATION
  Report Type: 
  Country: None (occurrence: None)
  Receive Date: 20101115
  Receipt Date: 20101020
  Transmission Date: 20110411
  Serious: Yes (Death)
  Sender: FDA-Public Use
  Company Number: GB-AMGEN-GBRCT2010000894

PATIENT

DRUGS (7)
  1. ETANERCEPT [Suspect]
     Indication: RHEUMATOID ARTHRITIS
     Dosage: 25 MG, 2 TIMES/WK
     Dates: start: 20030615
  2. FOLIC ACID [Concomitant]
     Dosage: UNKNOWN
  3. ROFECOXIB [Concomitant]
     Dosage: UNKNOWN
  4. PARACETAMOL [Concomitant]
     Dosage: UNKNOWN
  5. RAMIPRIL [Concomitant]
     Dosage: UNKNOWN
  6. ELANTAN [Concomitant]
     Dosage: UNKNOWN
  7. FRUSEMIDE [Concomitant]
     Dosage: UNKNOWN

REACTIONS (3)
  - ANGINA PECTORIS [None]
  - DIABETES MELLITUS [None]
  - INTESTINAL PERFORATION [None]
